FAERS Safety Report 6300272-2 (Version None)
Quarter: 2009Q3

REPORT INFORMATION
  Report Type: 
  Country: None (occurrence: None)
  Receive Date: 20090803
  Receipt Date: 20090720
  Transmission Date: 20100115
  Serious: Yes (Hospitalization)
  Sender: FDA-Public Use
  Company Number: 1000007848

PATIENT
  Age: 81 Year
  Sex: Male

DRUGS (8)
  1. CITALOPRAM HYDROBROMIDE [Suspect]
     Dosage: 20 MG (20 MG, 1 IN 1 D), ORAL
     Route: 048
     Dates: start: 20090611, end: 20090630
  2. TORENTAL      (SUSTAINED-RELEASE TABLET) [Suspect]
     Dosage: 800 MG (400 MG, 2 IN 1 D), ORAL
     Route: 048
     Dates: start: 20090611, end: 20090630
  3. LYRICA [Suspect]
     Dosage: 50 MG (25 MG, 2 IN 1 D), ORAL
     Route: 048
     Dates: start: 20090611, end: 20090630
  4. PLAVIX [Concomitant]
  5. DILTIAZEM [Concomitant]
  6. NOVONORM [Concomitant]
  7. COZAAR [Concomitant]
  8. OMEXEL [Concomitant]

REACTIONS (6)
  - BLOOD CULTURE POSITIVE [None]
  - ESCHERICHIA INFECTION [None]
  - GENERAL PHYSICAL HEALTH DETERIORATION [None]
  - HISTIOCYTOSIS HAEMATOPHAGIC [None]
  - PYREXIA [None]
  - THROMBOCYTOPENIA [None]
